FAERS Safety Report 5143325-7 (Version None)
Quarter: 2006Q4

REPORT INFORMATION
  Report Type: 
  Country: None (occurrence: None)
  Receive Date: 20061030
  Receipt Date: 20061016
  Transmission Date: 20070319
  Serious: Yes (Other)
  Sender: FDA-Public Use
  Company Number: 2006127384

PATIENT
  Age: 54 Year
  Sex: Male
  Weight: 83.9154 kg

DRUGS (8)
  1. CHANTIX [Suspect]
     Indication: SMOKING CESSATION THERAPY
     Dates: start: 20060909
  2. SIMVASTATIN [Concomitant]
  3. ALPRAZOLAM [Concomitant]
  4. SERTRALINE [Concomitant]
  5. VERAPAMIL [Concomitant]
  6. HYDROCHLOROTHIAZIDE [Concomitant]
  7. PLAVIX [Concomitant]
  8. LISINOPRIL [Concomitant]

REACTIONS (1)
  - BLOOD GLUCOSE INCREASED [None]
